FAERS Safety Report 15350255 (Version 1)
Quarter: 2018Q3

REPORT INFORMATION
  Report Type: Spontaneous
  Country: IN (occurrence: IN)
  Receive Date: 20180905
  Receipt Date: 20180905
  Transmission Date: 20181010
  Serious: Yes (Life-Threatening, Hospitalization, Other)
  Sender: FDA-Public Use
  Company Number: IN-CONCORDIA PHARMACEUTICALS INC.-E2B_00016570

PATIENT
  Age: 10 Year
  Sex: Male
  Weight: 28.7 kg

DRUGS (1)
  1. PREDNISOLONE. [Suspect]
     Active Substance: PREDNISOLONE
     Indication: NEPHROTIC SYNDROME
     Route: 048

REACTIONS (3)
  - Symptom masked [Recovered/Resolved]
  - Pericarditis tuberculous [Recovered/Resolved]
  - Tuberculosis [Recovered/Resolved]
